FAERS Safety Report 16218316 (Version 2)
Quarter: 2019Q2

REPORT INFORMATION
  Report Type: Report from Study
  Country: FR (occurrence: FR)
  Receive Date: 20190419
  Receipt Date: 20190424
  Transmission Date: 20190711
  Serious: Yes (Life-Threatening, Hospitalization, Other)
  Sender: FDA-Public Use
  Company Number: FR-MYLANLABS-2019M1037205

PATIENT
  Age: 52 Year
  Sex: Female
  Weight: 53 kg

DRUGS (7)
  1. RAMIPRIL. [Concomitant]
     Active Substance: RAMIPRIL
     Indication: HYPERTENSION
     Dosage: UNK
     Dates: start: 1998
  2. EFFICORT LIPOPHILE [Concomitant]
     Indication: PSORIASIS
     Dosage: UNK
     Dates: start: 20180125
  3. EFFERALGAN [Concomitant]
     Active Substance: ACETAMINOPHEN
     Indication: ARTHRALGIA
     Dosage: UNK
     Dates: start: 20180216
  4. MIRTAZAPINE. [Concomitant]
     Active Substance: MIRTAZAPINE
     Indication: DEPRESSION
     Dosage: UNK
     Dates: start: 20180131
  5. LEUPROLIDE                         /00726902/ [Suspect]
     Active Substance: LEUPROLIDE ACETATE
     Indication: INVASIVE DUCTAL BREAST CARCINOMA
     Dosage: 11.25 MILLIGRAM
     Route: 030
     Dates: start: 20180125
  6. TAMOXIFEN [Suspect]
     Active Substance: TAMOXIFEN
     Indication: INVASIVE DUCTAL BREAST CARCINOMA
     Dosage: UNK
     Route: 048
     Dates: start: 20180124, end: 20180929
  7. TAMOXIFEN [Suspect]
     Active Substance: TAMOXIFEN
     Dosage: UNK
     Route: 048
     Dates: start: 20181002

REACTIONS (3)
  - Unevaluable event [Unknown]
  - Depression [Unknown]
  - Suicide attempt [Recovered/Resolved with Sequelae]

NARRATIVE: CASE EVENT DATE: 2018
